FAERS Safety Report 21877943 (Version 4)
Quarter: 2023Q1

REPORT INFORMATION
  Report Type: Spontaneous
  Country: AT (occurrence: None)
  Receive Date: 20230118
  Receipt Date: 20230217
  Transmission Date: 20230417
  Serious: Yes (Hospitalization, Other)
  Sender: FDA-Public Use
  Company Number: 2023A010177

PATIENT
  Sex: Female
  Weight: 67 kg

DRUGS (6)
  1. IMFINZI [Suspect]
     Active Substance: DURVALUMAB
     Indication: Non-small cell lung cancer stage III
     Route: 042
     Dates: start: 20221122
  2. IMFINZI [Suspect]
     Active Substance: DURVALUMAB
     Indication: Non-small cell lung cancer stage III
     Route: 042
     Dates: start: 20221220
  3. PREDNISOLONE [Concomitant]
     Active Substance: PREDNISOLONE
     Dates: start: 20221227, end: 20221227
  4. PREDNISOLONE [Concomitant]
     Active Substance: PREDNISOLONE
     Dates: start: 20221228, end: 20230103
  5. FOLIC ACID [Concomitant]
     Active Substance: FOLIC ACID
  6. PANTOPRAZOLE SODIUM [Concomitant]
     Active Substance: PANTOPRAZOLE SODIUM

REACTIONS (8)
  - Rhabdomyolysis [Recovering/Resolving]
  - Acute coronary syndrome [Unknown]
  - Dysphagia [Unknown]
  - Dyspnoea [Unknown]
  - Immune-mediated myocarditis [Unknown]
  - General physical health deterioration [Unknown]
  - Fatigue [Unknown]
  - Troponin increased [Unknown]
